FAERS Safety Report 9119010 (Version 2)
Quarter: 2013Q2

REPORT INFORMATION
  Report Type: Spontaneous
  Country: JP (occurrence: JP)
  Receive Date: 20130226
  Receipt Date: 20130430
  Transmission Date: 20140414
  Serious: Yes (Other)
  Sender: FDA-Public Use
  Company Number: PHHY2012JP110569

PATIENT
  Age: 81 Year
  Sex: Male

DRUGS (4)
  1. EXELON PATCH [Suspect]
     Indication: DEMENTIA ALZHEIMER^S TYPE
     Dosage: 4.5 MG, DAILY
     Route: 062
     Dates: start: 20111006, end: 20111030
  2. EXELON PATCH [Suspect]
     Indication: VASCULAR DEMENTIA
     Dosage: 9 MG, DAILY
     Route: 062
     Dates: start: 20111101, end: 20111213
  3. YOKUKAN-SAN [Suspect]
     Dosage: 2.5 G, DAILY
     Route: 048
     Dates: start: 20111203, end: 20111208
  4. YOKUKAN-SAN [Suspect]
     Dosage: 5 G, DAILY
     Route: 048
     Dates: start: 20111209, end: 20111213

REACTIONS (3)
  - Drug-induced liver injury [Recovered/Resolved]
  - Hepatic function abnormal [Unknown]
  - Lymphocyte stimulation test positive [Unknown]
